FAERS Safety Report 8030328-8 (Version None)
Quarter: 2012Q1

REPORT INFORMATION
  Report Type: 
  Country: None (occurrence: None)
  Receive Date: 20120109
  Receipt Date: 20120104
  Transmission Date: 20120608
  Serious: Yes (Other)
  Sender: FDA-Public Use
  Company Number: PHEH2011US011027

PATIENT
  Sex: Female

DRUGS (9)
  1. ARANESP [Concomitant]
  2. MULTI-VITAMIN [Concomitant]
  3. FOLIC ACID [Concomitant]
     Dosage: 1 MG, UNK
  4. HYDROMORPHONE HCL [Concomitant]
     Dosage: 4 MG, UNK
  5. FENTANYL [Concomitant]
  6. EXJADE [Suspect]
     Dosage: 1500 MG, DAILY
  7. BUPROPION HYDROCHLORIDE [Concomitant]
  8. SEROQUEL [Concomitant]
  9. SERTRALINE HYDROCHLORIDE [Concomitant]
     Dosage: 200 MG, UNK

REACTIONS (4)
  - SICKLE CELL ANAEMIA WITH CRISIS [None]
  - SKIN ULCER HAEMORRHAGE [None]
  - HAEMOGLOBIN DECREASED [None]
  - NERVOUSNESS [None]
